FAERS Safety Report 7184940-9 (Version None)
Quarter: 2010Q4

REPORT INFORMATION
  Report Type: 
  Country: None (occurrence: None)
  Receive Date: 20101222
  Receipt Date: 20101215
  Transmission Date: 20110411
  Serious: Yes (Other)
  Sender: FDA-Public Use
  Company Number: JP-ABBOTT-10P-087-0692786-00

PATIENT
  Age: 72 Year
  Sex: Male
  Weight: 52 kg

DRUGS (14)
  1. KLARICID [Suspect]
     Indication: MYCOBACTERIUM AVIUM COMPLEX INFECTION
     Route: 048
  2. HUSCODE [Suspect]
     Indication: MYCOBACTERIUM AVIUM COMPLEX INFECTION
     Route: 048
     Dates: end: 20090729
  3. HUSCODE [Suspect]
     Route: 048
     Dates: start: 20090730
  4. RIFABUTIN [Suspect]
     Indication: MYCOBACTERIUM AVIUM COMPLEX INFECTION
     Route: 048
     Dates: start: 20090226, end: 20090311
  5. RIFABUTIN [Suspect]
     Route: 048
     Dates: start: 20090312, end: 20090729
  6. RIFABUTIN [Suspect]
     Route: 048
     Dates: start: 20090730, end: 20100304
  7. ESANBUTOL [Suspect]
     Indication: MYCOBACTERIUM AVIUM COMPLEX INFECTION
     Route: 048
     Dates: end: 20100107
  8. MUCOSOLVAN [Suspect]
     Indication: MYCOBACTERIUM AVIUM COMPLEX INFECTION
     Route: 048
  9. MUCODYNE [Suspect]
     Indication: MYCOBACTERIUM AVIUM COMPLEX INFECTION
     Route: 048
  10. BERIZYM [Suspect]
     Indication: PRODUCT USED FOR UNKNOWN INDICATION
     Route: 048
  11. AMARYL [Suspect]
     Indication: PRODUCT USED FOR UNKNOWN INDICATION
     Route: 048
     Dates: end: 20091223
  12. AMARYL [Suspect]
     Route: 048
     Dates: start: 20091224
  13. MUCOSTA [Suspect]
     Indication: PRODUCT USED FOR UNKNOWN INDICATION
  14. GARENOXACIN MESYLATE [Concomitant]
     Indication: PRODUCT USED FOR UNKNOWN INDICATION
     Dates: start: 20090730, end: 20090803

REACTIONS (3)
  - UVEITIS [None]
  - VISUAL ACUITY REDUCED [None]
  - VITREOUS DETACHMENT [None]
